FAERS Safety Report 26043270 (Version 1)
Quarter: 2025Q4

REPORT INFORMATION
  Report Type: Spontaneous
  Country: EU (occurrence: EU)
  Receive Date: 20251113
  Receipt Date: 20251113
  Transmission Date: 20260118
  Serious: Yes (Other)
  Sender: LUNDBECK
  Company Number: None

PATIENT
  Age: 43 Year
  Sex: Female
  Weight: 59 kg

DRUGS (11)
  1. VYEPTI [Suspect]
     Active Substance: EPTINEZUMAB-JJMR
     Indication: Migraine
     Dosage: 1 DOSAGE FORM
     Route: 040
     Dates: start: 20250516, end: 20250516
  2. VYEPTI [Suspect]
     Active Substance: EPTINEZUMAB-JJMR
     Dosage: 1 DOSAGE FORM
     Route: 040
     Dates: start: 20250814, end: 20250814
  3. BOTULINUM TOXIN TYPE A [Concomitant]
     Active Substance: BOTULINUM TOXIN TYPE A
     Indication: Migraine
     Dosage: 1 DOSAGE FORM
     Dates: start: 20240701
  4. PROPRANOLOL [Concomitant]
     Active Substance: PROPRANOLOL HYDROCHLORIDE
     Indication: Migraine
     Dosage: 40 MILLIGRAM
     Route: 048
  5. SUMATRIPTAN [Concomitant]
     Active Substance: SUMATRIPTAN
     Indication: Migraine
     Dosage: 6 MILLIGRAM
     Route: 058
  6. LEVOTHYROXINE [Concomitant]
     Active Substance: LEVOTHYROXINE
     Indication: Hypothyroidism
     Dosage: 150 MICROGRAM
     Route: 048
  7. DIMETRUM [Concomitant]
     Indication: Adenomyosis
     Dosage: 2 MILLIGRAM
     Route: 048
  8. XARELTO [Concomitant]
     Active Substance: RIVAROXABAN
     Indication: Thrombosis prophylaxis
     Dosage: 20 MILLIGRAM
     Route: 048
  9. PRAZEPAM [Concomitant]
     Active Substance: PRAZEPAM
     Indication: Migraine
     Dosage: 10 MILLIGRAM
     Route: 048
  10. FLUOXETINE HYDROCHLORIDE;OLANZAPINE [Concomitant]
     Indication: Migraine
     Dosage: 20 MILLIGRAM
     Route: 048
  11. DAFALGAN CODEINE [Concomitant]
     Active Substance: ACETAMINOPHEN\CODEINE PHOSPHATE
     Indication: Migraine
     Dosage: 2 DOSAGE FORM
     Route: 048

REACTIONS (1)
  - Hyperthyroidism [Not Recovered/Not Resolved]

NARRATIVE: CASE EVENT DATE: 20250617
